FAERS Safety Report 13068452 (Version 1)
Quarter: 2016Q4

REPORT INFORMATION
  Report Type: Spontaneous
  Country: DE (occurrence: DE)
  Receive Date: 20161228
  Receipt Date: 20161228
  Transmission Date: 20170207
  Serious: Yes (Congenital Anomaly, Other)
  Sender: FDA-Public Use
  Company Number: GXKR2016DE005901

PATIENT

DRUGS (3)
  1. QUETIAPINE. [Suspect]
     Active Substance: QUETIAPINE
     Indication: BORDERLINE PERSONALITY DISORDER
     Dosage: 200-0-300 MG/D
     Route: 064
     Dates: start: 20151210, end: 20160809
  2. FOLIC ACID. [Concomitant]
     Active Substance: FOLIC ACID
     Indication: PROPHYLAXIS OF NEURAL TUBE DEFECT
     Dosage: 0.4 [MG/D ]
     Route: 064
     Dates: start: 20151210, end: 20160809
  3. QUETIAPIN AUROBINDO [Suspect]
     Active Substance: QUETIAPINE
     Indication: BORDERLINE PERSONALITY DISORDER
     Dosage: 100 [MG/D ]/ BY NIGHT
     Route: 064
     Dates: start: 20151210, end: 20160809

REACTIONS (5)
  - Caesarean section [None]
  - Maternal drugs affecting foetus [None]
  - Haemangioma congenital [Not Recovered/Not Resolved]
  - Premature baby [None]
  - Respiratory disorder neonatal [Recovered/Resolved]

NARRATIVE: CASE EVENT DATE: 20160808
